FAERS Safety Report 26015805 (Version 1)
Quarter: 2025Q4

REPORT INFORMATION
  Report Type: Spontaneous
  Country: EU (occurrence: EU)
  Receive Date: 20251109
  Receipt Date: 20251109
  Transmission Date: 20260117
  Serious: Yes (Hospitalization)
  Sender: JOHNSON AND JOHNSON
  Company Number: EU-JNJFOC-20251149539

PATIENT
  Age: 45 Year
  Sex: Male

DRUGS (1)
  1. TRABECTEDIN [Suspect]
     Active Substance: TRABECTEDIN
     Indication: Liposarcoma
     Route: 065

REACTIONS (5)
  - Acute kidney injury [Unknown]
  - Liver injury [Unknown]
  - Myalgia [Unknown]
  - Rhabdomyolysis [Unknown]
  - Asthenia [Unknown]
